FAERS Safety Report 19276843 (Version 2)
Quarter: 2023Q4

REPORT INFORMATION
  Report Type: Report from Study
  Country: KR (occurrence: KR)
  Receive Date: 20210519
  Receipt Date: 20231109
  Transmission Date: 20240109
  Serious: Yes (Death, Hospitalization)
  Sender: FDA-Public Use
  Company Number: KR-GILEAD-2021-0530868

PATIENT
  Sex: Male
  Weight: 67 kg

DRUGS (16)
  1. REMDESIVIR [Suspect]
     Active Substance: REMDESIVIR
     Indication: COVID-19
     Dosage: 200 MG
     Route: 042
     Dates: start: 20210504, end: 20210504
  2. REMDESIVIR [Suspect]
     Active Substance: REMDESIVIR
     Dosage: 100 MG, QD
     Route: 042
     Dates: start: 20210505, end: 20210508
  3. LEVOFLOXACIN [Concomitant]
     Active Substance: LEVOFLOXACIN
     Dosage: 750 MG/150 MG
     Dates: start: 20210504, end: 20210515
  4. TAZOPERAN [Concomitant]
     Dosage: 4.5 G
     Dates: start: 20210506, end: 20210515
  5. CEFTRIAXONE SODIUM [Concomitant]
     Active Substance: CEFTRIAXONE SODIUM
     Dosage: 2 G
     Dates: start: 20210504, end: 20210506
  6. DEXAMETHASONE [Concomitant]
     Active Substance: DEXAMETHASONE
     Dosage: UNK
     Dates: start: 20210505, end: 20210506
  7. ENOXAPARIN SODIUM [Concomitant]
     Active Substance: ENOXAPARIN SODIUM
     Dosage: 40 MG/0-.4 ML
     Dates: start: 20210504, end: 20210509
  8. METHYSOL [Concomitant]
     Dosage: 125 MG
     Dates: start: 20210506, end: 20210510
  9. BORYUNG ACETYLCYSTEINE [Concomitant]
     Dosage: 100 MG
     Dates: end: 20210515
  10. ATACAND [Concomitant]
     Active Substance: CANDESARTAN CILEXETIL
     Dosage: 16 MG
     Dates: end: 20210515
  11. GEMIGLIPTIN\METFORMIN [Concomitant]
     Active Substance: GEMIGLIPTIN\METFORMIN
     Dosage: 50/500 MG
     Dates: end: 20210515
  12. ISMO [Concomitant]
     Active Substance: ISOSORBIDE MONONITRATE
     Dosage: 20 MG
     Dates: end: 20210515
  13. NORVASC [Concomitant]
     Active Substance: AMLODIPINE BESYLATE
     Dosage: 5 MG
     Dates: end: 20210515
  14. PIRFENIDONE [Concomitant]
     Active Substance: PIRFENIDONE
     Dosage: 200 MG
     Dates: start: 20210506, end: 20210515
  15. VASTINAN MR [Concomitant]
     Dosage: 35 MG
     Dates: start: 20210504, end: 20210515
  16. OXYGEN [Concomitant]
     Active Substance: OXYGEN

REACTIONS (1)
  - COVID-19 pneumonia [Fatal]

NARRATIVE: CASE EVENT DATE: 20210506
